FAERS Safety Report 23683065 (Version 1)
Quarter: 2024Q1

REPORT INFORMATION
  Report Type: Spontaneous
  Country: US (occurrence: US)
  Receive Date: 20240328
  Receipt Date: 20240328
  Transmission Date: 20240409
  Serious: No
  Sender: FDA-Public Use
  Company Number: US-BAUSCHBL-2024BNL003451

PATIENT
  Age: 86 Year
  Sex: Female

DRUGS (1)
  1. ERYTHROMYCIN [Suspect]
     Active Substance: ERYTHROMYCIN
     Indication: Product used for unknown indication
     Dosage: EYES ONCE DAILY AT NIGHT
     Route: 065

REACTIONS (3)
  - Eye swelling [Recovering/Resolving]
  - Erythema [Recovering/Resolving]
  - Periorbital swelling [Recovering/Resolving]
